FAERS Safety Report 21056857 (Version 1)
Quarter: 2022Q3

REPORT INFORMATION
  Report Type: Spontaneous
  Country: US (occurrence: US)
  Receive Date: 20220708
  Receipt Date: 20220708
  Transmission Date: 20221026
  Serious: No
  Sender: FDA-Public Use
  Company Number: US-ALLERGAN-2219745US

PATIENT
  Age: 50 Year
  Sex: Female

DRUGS (1)
  1. QULIPTA [Suspect]
     Active Substance: ATOGEPANT
     Indication: Somnolence
     Dosage: 60 MG, QD
     Route: 048
     Dates: start: 20220608

REACTIONS (2)
  - Off label use [Unknown]
  - Headache [Unknown]

NARRATIVE: CASE EVENT DATE: 20220608
